FAERS Safety Report 16642438 (Version 1)
Quarter: 2019Q3

REPORT INFORMATION
  Report Type: Spontaneous
  Country: CA (occurrence: CA)
  Receive Date: 20190729
  Receipt Date: 20190729
  Transmission Date: 20191004
  Serious: Yes (Life-Threatening)
  Sender: FDA-Public Use
  Company Number: CA-TEVA-2019-CA-1083911

PATIENT
  Age: 59 Year
  Sex: Female
  Weight: 49.03 kg

DRUGS (1)
  1. TEVA-QUETIAPINE XR [Suspect]
     Active Substance: QUETIAPINE
     Indication: SCHIZOPHRENIA
     Dosage: 400 MILLIGRAM DAILY;
     Route: 048

REACTIONS (5)
  - Fear [Unknown]
  - Feeling abnormal [Unknown]
  - Dizziness [Unknown]
  - Syncope [Unknown]
  - Nausea [Unknown]
